FAERS Safety Report 7198283-0 (Version None)
Quarter: 2010Q4

REPORT INFORMATION
  Report Type: 
  Country: None (occurrence: None)
  Receive Date: 20101227
  Receipt Date: 20101214
  Transmission Date: 20110411
  Serious: Yes (Other)
  Sender: FDA-Public Use
  Company Number: PHEH2005US02832

PATIENT
  Sex: Female

DRUGS (5)
  1. GLEEVEC [Suspect]
     Indication: CHRONIC MYELOID LEUKAEMIA
     Dosage: 400 MG, QD
     Route: 048
     Dates: start: 20010725
  2. NEXIUM [Suspect]
     Indication: GASTROOESOPHAGEAL REFLUX DISEASE
     Dosage: UNK, QD
     Route: 048
  3. CYCLOBENZAPRINE [Concomitant]
  4. ALEVE [Concomitant]
  5. CHEMOTHERAPEUTICS NOS [Concomitant]

REACTIONS (4)
  - BACK PAIN [None]
  - CATARACT OPERATION [None]
  - CONJUNCTIVAL HAEMORRHAGE [None]
  - EYE HAEMORRHAGE [None]
